FAERS Safety Report 5381206-4 (Version None)
Quarter: 2007Q3

REPORT INFORMATION
  Report Type: 
  Country: None (occurrence: None)
  Receive Date: 20070706
  Receipt Date: 20070625
  Transmission Date: 20080115
  Serious: Yes (Other)
  Sender: FDA-Public Use
  Company Number: GB-PFIZER INC-2007053375

PATIENT

DRUGS (1)
  1. CARDURA [Suspect]

REACTIONS (1)
  - GASTROINTESTINAL TUBE INSERTION [None]
